FAERS Safety Report 25741635 (Version 5)
Quarter: 2025Q4

REPORT INFORMATION
  Report Type: Report from Study
  Country: US (occurrence: US)
  Receive Date: 20250829
  Receipt Date: 20251008
  Transmission Date: 20260119
  Serious: Yes (Disabling)
  Sender: BAUSCH AND LOMB
  Company Number: US-BAUSCH-BH-2025-016836

PATIENT
  Age: 64 Year
  Sex: Female

DRUGS (2)
  1. XIFAXAN [Suspect]
     Active Substance: RIFAXIMIN
     Indication: Hepatic encephalopathy
     Route: 065
     Dates: start: 2025, end: 2025
  2. XIFAXAN [Suspect]
     Active Substance: RIFAXIMIN
     Indication: Hepatic cirrhosis
     Route: 065
     Dates: start: 2025

REACTIONS (5)
  - Histiocytosis [Not Recovered/Not Resolved]
  - Blindness [Unknown]
  - Intra-abdominal fluid collection [Recovering/Resolving]
  - Therapy interrupted [Unknown]
  - Inability to afford medication [Unknown]

NARRATIVE: CASE EVENT DATE: 20250901
